FAERS Safety Report 7156700-6 (Version None)
Quarter: 2010Q4

REPORT INFORMATION
  Report Type: 
  Country: None (occurrence: None)
  Receive Date: 20101214
  Receipt Date: 20091201
  Transmission Date: 20110411
  Serious: No
  Sender: FDA-Public Use
  Company Number: US-ASTRAZENECA-2009SE29676

PATIENT
  Age: 91 Year
  Sex: Female
  Weight: 68 kg

DRUGS (8)
  1. CRESTOR [Suspect]
     Route: 048
     Dates: start: 20091112
  2. ATENOLOL [Concomitant]
  3. MAXZIDE [Concomitant]
  4. SYNTHROID [Concomitant]
  5. ALTACE [Concomitant]
  6. COUMADIN [Concomitant]
  7. LANOXIN [Concomitant]
  8. ASPIRIN [Concomitant]

REACTIONS (5)
  - ARTHRITIS [None]
  - HEADACHE [None]
  - MUSCULOSKELETAL PAIN [None]
  - NAUSEA [None]
  - POLLAKIURIA [None]
